FAERS Safety Report 21032496 (Version 1)
Quarter: 2022Q2

REPORT INFORMATION
  Report Type: Spontaneous
  Country: US (occurrence: None)
  Receive Date: 20220630
  Receipt Date: 20220630
  Transmission Date: 20220721
  Serious: No
  Sender: FDA-Public Use
  Company Number: None

PATIENT
  Age: 73 Year
  Sex: Female
  Weight: 127.91 kg

DRUGS (9)
  1. TEMOZOLOMIDE [Suspect]
     Active Substance: TEMOZOLOMIDE
     Indication: Malignant melanoma
     Dosage: OTHER FREQUENCY : DAYS 1-5;?
     Route: 048
  2. TEMOZOLOMIDE [Suspect]
     Active Substance: TEMOZOLOMIDE
     Indication: Malignant melanoma
     Dosage: OTHER FREQUENCY : DAY 1-5;?
     Route: 048
  3. ALLOPURINOL [Concomitant]
     Active Substance: ALLOPURINOL
  4. CLINDAMYCIN [Concomitant]
     Active Substance: CLINDAMYCIN
  5. HYDROXYZINE [Concomitant]
     Active Substance: HYDROXYZINE HYDROCHLORIDE
  6. LANTUS [Concomitant]
     Active Substance: INSULIN GLARGINE
  7. SYNTHROID [Concomitant]
     Active Substance: LEVOTHYROXINE SODIUM
  8. LOSARTAN [Concomitant]
     Active Substance: LOSARTAN
  9. ZOFRAN [Concomitant]

REACTIONS (3)
  - Drug ineffective [None]
  - Therapy cessation [None]
  - Malaise [None]
